FAERS Safety Report 7258651-5 (Version None)
Quarter: 2011Q1

REPORT INFORMATION
  Report Type: 
  Country: None (occurrence: None)
  Receive Date: 20110129
  Receipt Date: 20100618
  Transmission Date: 20110831
  Serious: No
  Sender: FDA-Public Use
  Company Number: US-ABBOTT-09P-163-0601444-00

PATIENT
  Sex: Male
  Weight: 6.356 kg

DRUGS (2)
  1. HUMIRA [Suspect]
     Indication: DRUG EXPOSURE DURING PREGNANCY
     Route: 064
  2. HUMIRA [Suspect]
     Route: 063

REACTIONS (4)
  - DRUG EXPOSURE DURING PREGNANCY [None]
  - NORMAL NEWBORN [None]
  - ABDOMINAL PAIN [None]
  - DRUG EXPOSURE VIA BREAST MILK [None]
